FAERS Safety Report 13583142 (Version 6)
Quarter: 2020Q4

REPORT INFORMATION
  Report Type: Spontaneous
  Country: US (occurrence: US)
  Receive Date: 20170525
  Receipt Date: 20201022
  Transmission Date: 20210113
  Serious: Yes (Other)
  Sender: FDA-Public Use
  Company Number: US-JAZZ-2017-US-005558

PATIENT
  Sex: Female

DRUGS (38)
  1. PROCHLORPERAZINE EDISYLATE. [Concomitant]
     Active Substance: PROCHLORPERAZINE EDISYLATE
  2. METHOCARBAMOL. [Concomitant]
     Active Substance: METHOCARBAMOL
  3. MAGNESIUM [Concomitant]
     Active Substance: MAGNESIUM
  4. MAGNESIUM CITRATE. [Concomitant]
     Active Substance: MAGNESIUM CITRATE
  5. SPIRONOLACTONE. [Concomitant]
     Active Substance: SPIRONOLACTONE
  6. VITAMIN D3 [Concomitant]
     Active Substance: CHOLECALCIFEROL
  7. IODINE. [Concomitant]
     Active Substance: IODINE
  8. MELATONIN [Concomitant]
     Active Substance: MELATONIN
  9. VERAPAMIL [Concomitant]
     Active Substance: VERAPAMIL HYDROCHLORIDE
  10. WESTHROID [Concomitant]
     Active Substance: THYROGLOBULIN
  11. VERAPAMIL HYDROCHLORIDE. [Concomitant]
     Active Substance: VERAPAMIL HYDROCHLORIDE
  12. DEMEROL [Concomitant]
     Active Substance: MEPERIDINE HYDROCHLORIDE
  13. FOLIC ACID. [Concomitant]
     Active Substance: FOLIC ACID
  14. SELENIUM [Concomitant]
     Active Substance: SELENIUM
  15. PROPRANOLOL [Concomitant]
     Active Substance: PROPRANOLOL HYDROCHLORIDE
  16. TRAMADOL HCL [Concomitant]
     Active Substance: TRAMADOL HYDROCHLORIDE
  17. PROMETHAZINE [Concomitant]
     Active Substance: PROMETHAZINE HYDROCHLORIDE
  18. ALBUTEROL SULFATE. [Concomitant]
     Active Substance: ALBUTEROL SULFATE
  19. PHYTOMENADIONE [Concomitant]
     Active Substance: PHYTONADIONE
  20. ZINC ACETATE [Concomitant]
     Active Substance: ZINC ACETATE
  21. TRAZODONE [Concomitant]
     Active Substance: TRAZODONE HYDROCHLORIDE
  22. CALCIUM CITRATE +D [Concomitant]
     Active Substance: CALCIUM CITRATE\VITAMIN D
  23. ASCORBIC ACID. [Concomitant]
     Active Substance: ASCORBIC ACID
  24. ATIVAN [Concomitant]
     Active Substance: LORAZEPAM
  25. DIPHENHYDRAMINE HYDROCHLORIDE. [Concomitant]
     Active Substance: DIPHENHYDRAMINE HYDROCHLORIDE
  26. MINIVELLE [Concomitant]
     Active Substance: ESTRADIOL
  27. XANAX [Concomitant]
     Active Substance: ALPRAZOLAM
  28. ZINC GLUCONATE [Concomitant]
     Active Substance: ZINC GLUCONATE
  29. KLONOPIN [Concomitant]
     Active Substance: CLONAZEPAM
  30. XYREM [Suspect]
     Active Substance: SODIUM OXYBATE
     Indication: NARCOLEPSY
     Dosage: 2.25G, BID
     Route: 048
     Dates: start: 201203, end: 201204
  31. XYREM [Suspect]
     Active Substance: SODIUM OXYBATE
     Dosage: 3G, BID
     Route: 048
     Dates: start: 201204, end: 201209
  32. TORADOL [Concomitant]
     Active Substance: KETOROLAC TROMETHAMINE
  33. NATURE-THROID [Concomitant]
     Active Substance: THYROID, PORCINE
  34. ARTHROTEC [Concomitant]
     Active Substance: DICLOFENAC SODIUM\MISOPROSTOL
  35. XYREM [Suspect]
     Active Substance: SODIUM OXYBATE
     Dosage: 4.5G, BID
     Route: 048
     Dates: start: 201209
  36. CHROMIUM PICOLINAT [Concomitant]
  37. CALCARB [Concomitant]
  38. CAMBIA [Concomitant]
     Active Substance: DICLOFENAC POTASSIUM

REACTIONS (6)
  - Spinal disorder [Not Recovered/Not Resolved]
  - Therapeutic procedure [Unknown]
  - Hepatic steatosis [Not Recovered/Not Resolved]
  - Weight increased [Unknown]
  - Gastritis [Not Recovered/Not Resolved]
  - Muscle spasms [Not Recovered/Not Resolved]

NARRATIVE: CASE EVENT DATE: 2019
